FAERS Safety Report 6837044-6 (Version None)
Quarter: 2010Q3

REPORT INFORMATION
  Report Type: 
  Country: None (occurrence: None)
  Receive Date: 20100713
  Receipt Date: 20070804
  Transmission Date: 20110219
  Serious: No
  Sender: FDA-Public Use
  Company Number: US-PFIZER INC-2007036512

PATIENT
  Sex: Female

DRUGS (4)
  1. CHANTIX [Suspect]
     Indication: SMOKING CESSATION THERAPY
     Dates: start: 20070301
  2. ZYRTEC [Concomitant]
  3. FLUTICASONE PROPIONATE [Concomitant]
  4. ZANTAC [Concomitant]

REACTIONS (2)
  - AGGRESSION [None]
  - PARAESTHESIA [None]
